FAERS Safety Report 8370277-9 (Version None)
Quarter: 2012Q2

REPORT INFORMATION
  Report Type: 
  Country: None (occurrence: None)
  Receive Date: 20120518
  Receipt Date: 20110518
  Transmission Date: 20120825
  Serious: No
  Sender: FDA-Public Use
  Company Number: US-ASTRAZENECA-2011SE34612

PATIENT

DRUGS (2)
  1. PRILOSEC OTC [Suspect]
     Indication: GASTRIC DISORDER
     Route: 048
  2. PRILOSEC OTC [Suspect]
     Indication: DYSPEPSIA
     Route: 048

REACTIONS (1)
  - DRUG INEFFECTIVE [None]
